FAERS Safety Report 6769581-7 (Version None)
Quarter: 2010Q2

REPORT INFORMATION
  Report Type: 
  Country: None (occurrence: None)
  Receive Date: 20100615
  Receipt Date: 20100609
  Transmission Date: 20101027
  Serious: Yes (Death)
  Sender: FDA-Public Use
  Company Number: PHHY2010JP37865

PATIENT
  Age: 27 Year
  Sex: Female

DRUGS (2)
  1. TEGRETOL [Suspect]
     Indication: SCHIZOPHRENIA
     Dosage: UNK,
     Route: 048
  2. DANTRIUM [Concomitant]
     Dosage: UNK,
     Route: 048

REACTIONS (2)
  - SEPTIC SHOCK [None]
  - WHITE BLOOD CELL COUNT DECREASED [None]
